FAERS Safety Report 5590203-5 (Version None)
Quarter: 2008Q1

REPORT INFORMATION
  Report Type: 
  Country: None (occurrence: None)
  Receive Date: 20080114
  Receipt Date: 20080109
  Transmission Date: 20080703
  Serious: Yes (Hospitalization)
  Sender: FDA-Public Use
  Company Number: US-ASTRAZENECA-2008UW00654

PATIENT
  Age: 40 Year
  Sex: Male

DRUGS (4)
  1. CRESTOR [Suspect]
     Route: 048
  2. INSULIN [Concomitant]
  3. LISINOPRIL [Concomitant]
  4. COREG [Concomitant]

REACTIONS (2)
  - NEPHROTIC SYNDROME [None]
  - RENAL FAILURE [None]
